FAERS Safety Report 15415344 (Version 1)
Quarter: 2018Q3

REPORT INFORMATION
  Report Type: Spontaneous
  Country: CN (occurrence: CN)
  Receive Date: 20180921
  Receipt Date: 20180921
  Transmission Date: 20181010
  Serious: Yes (Hospitalization, Other)
  Sender: FDA-Public Use
  Company Number: CN-GILEAD-2018-0363057

PATIENT
  Age: 50 Year
  Sex: Female

DRUGS (11)
  1. CALCITRIOL. [Concomitant]
     Active Substance: CALCITRIOL
     Indication: PRODUCT USED FOR UNKNOWN INDICATION
     Dosage: 0.25 UG, BID
     Route: 048
  2. ENTECAVIR. [Concomitant]
     Active Substance: ENTECAVIR
     Indication: ANTIVIRAL TREATMENT
     Dosage: 0.5 MG, QD
     Route: 065
  3. CALCIUM CARBONATE. [Concomitant]
     Active Substance: CALCIUM CARBONATE
     Indication: PRODUCT USED FOR UNKNOWN INDICATION
     Dosage: 0.6 UNKNOWN, BID
     Route: 048
  4. DICLOFENAC SODIUM. [Concomitant]
     Active Substance: DICLOFENAC SODIUM
     Indication: PRODUCT USED FOR UNKNOWN INDICATION
     Dosage: 75 MG, QD
     Route: 048
  5. LAMIVUDINE. [Suspect]
     Active Substance: LAMIVUDINE
     Indication: HEPATITIS B
     Dosage: 100 MG, QD
     Route: 048
  6. ALENDRONATE [Concomitant]
     Active Substance: ALENDRONATE SODIUM
     Indication: PRODUCT USED FOR UNKNOWN INDICATION
     Dosage: 70 MG, Q1WK
     Route: 048
  7. PHOSPHORUS [Concomitant]
     Active Substance: PHOSPHORUS
     Dosage: 20 ML, UNK
     Route: 048
  8. PHOSPHORUS [Concomitant]
     Active Substance: PHOSPHORUS
     Indication: PRODUCT USED FOR UNKNOWN INDICATION
     Dosage: 10 ML, UNK
     Route: 048
  9. ADEFOVIR DIPIVOXIL. [Suspect]
     Active Substance: ADEFOVIR DIPIVOXIL
     Indication: HEPATITIS B
     Dosage: 10 MG, QD
     Route: 048
     Dates: end: 20180311
  10. SALCATONIN [Concomitant]
     Active Substance: CALCITONIN SALMON
     Indication: PRODUCT USED FOR UNKNOWN INDICATION
     Dosage: UNK
     Route: 065
  11. PHOSPHORUS [Concomitant]
     Active Substance: PHOSPHORUS
     Dosage: 30 ML, QID
     Route: 048

REACTIONS (18)
  - Weight decreased [Unknown]
  - Inappropriate schedule of drug administration [Unknown]
  - Osteoporosis [Unknown]
  - Osteomalacia [Recovering/Resolving]
  - Acidosis [Recovering/Resolving]
  - Pain [Recovered/Resolved]
  - Proteinuria [Recovering/Resolving]
  - Renal disorder [Recovering/Resolving]
  - Blood alkaline phosphatase increased [Recovering/Resolving]
  - Bone pain [Recovering/Resolving]
  - Renal tubular dysfunction [Recovering/Resolving]
  - Muscular weakness [Recovering/Resolving]
  - Fanconi syndrome acquired [Recovering/Resolving]
  - Condition aggravated [Unknown]
  - Blood uric acid decreased [Recovering/Resolving]
  - Drug resistance [Unknown]
  - Gait disturbance [Recovering/Resolving]
  - Electrolyte imbalance [Recovering/Resolving]

NARRATIVE: CASE EVENT DATE: 2013
